FAERS Safety Report 20591331 (Version 1)
Quarter: 2022Q1

REPORT INFORMATION
  Report Type: Spontaneous
  Country: US (occurrence: US)
  Receive Date: 20220314
  Receipt Date: 20220314
  Transmission Date: 20220424
  Serious: No
  Sender: FDA-Public Use
  Company Number: US-BioDelivery Sciences International-2022BDSI0036

PATIENT
  Sex: Male

DRUGS (2)
  1. BELBUCA [Suspect]
     Active Substance: BUPRENORPHINE HYDROCHLORIDE
     Indication: Pain
     Dosage: UNKNOWN, UNKNOWN
     Route: 065
  2. ZYVOX [Suspect]
     Active Substance: LINEZOLID
     Indication: Staphylococcal infection
     Dosage: UNKNOWN, UNKNOWN
     Route: 065
     Dates: start: 20220126, end: 202201

REACTIONS (4)
  - Tremor [Unknown]
  - Anxiety [Unknown]
  - Staphylococcal infection [Unknown]
  - Drug interaction [Unknown]

NARRATIVE: CASE EVENT DATE: 20220101
